FAERS Safety Report 10281331 (Version 1)
Quarter: 2014Q3

REPORT INFORMATION
  Report Type: Spontaneous
  Country: US (occurrence: None)
  Receive Date: 20140702
  Receipt Date: 20140702
  Transmission Date: 20150326
  Serious: Yes (Hospitalization)
  Sender: FDA-Public Use
  Company Number: None

PATIENT
  Age: 64 Year
  Sex: Female
  Weight: 54.43 kg

DRUGS (1)
  1. MINOXIDIL 2% [Suspect]
     Active Substance: MINOXIDIL

REACTIONS (3)
  - Post procedural haemorrhage [None]
  - Plastic surgery to the face [None]
  - Eye operation [None]
